FAERS Safety Report 9692525 (Version 1)
Quarter: 2013Q4

REPORT INFORMATION
  Report Type: Report from Study
  Country: ES (occurrence: ES)
  Receive Date: 20131118
  Receipt Date: 20131118
  Transmission Date: 20140711
  Serious: Yes (Life-Threatening, Hospitalization)
  Sender: FDA-Public Use
  Company Number: ES-009507513-1311ESP005717

PATIENT
  Age: 37 Year
  Sex: Male

DRUGS (3)
  1. ESMERON [Suspect]
     Indication: INDUCTION OF ANAESTHESIA
     Dosage: 10 MG/ML 10 VIALS A 5 ML
     Route: 042
     Dates: start: 20130207, end: 20130207
  2. PROPOFOL [Suspect]
     Indication: INDUCTION OF ANAESTHESIA
     Route: 042
     Dates: start: 20130207, end: 20130207
  3. REMIFENTANIL HYDROCHLORIDE [Suspect]
     Route: 042
     Dates: start: 20130207, end: 20130207

REACTIONS (2)
  - Ventricular tachycardia [Recovered/Resolved]
  - Ventricular fibrillation [Recovered/Resolved]
